FAERS Safety Report 9250787 (Version 1)
Quarter: 2013Q1

REPORT INFORMATION
  Report Type: Spontaneous
  Country: US (occurrence: None)
  Receive Date: 20130305
  Receipt Date: 20130305
  Transmission Date: 20140127
  Serious: Yes (Other)
  Sender: FDA-Public Use
  Company Number: 163-21880-12040242

PATIENT
  Age: 89 Year
  Sex: Male

DRUGS (9)
  1. REVLIMID [Suspect]
     Indication: CHRONIC LYMPHOCYTIC LEUKAEMIA
     Dosage: 10 MG, 21 DAYS/7 DAYS OFF, PO
     Route: 048
     Dates: start: 20120224
  2. LIPITOR (ATORVASTATIN) (UNKNOWN) [Concomitant]
  3. PLAVIX (CLOPIDOGREL SULFATE) (UNKNOWN) [Concomitant]
  4. LISINOPRIL (LISINOPRIL) (UNKNOWN) [Concomitant]
  5. METOPROLOL (METOPROLOL) (UNKNOWN) [Concomitant]
  6. OMEPRAZOLE (OMEPRAZOLE) (UNKNOWN) [Concomitant]
  7. TAMSULOSIN (TAMSULOSIN) (UNKNOWN) [Concomitant]
  8. VITAMIN B6 (PYRIDOXINE HYDROCHLORIDE) (UNKNOWN) [Concomitant]
  9. ASPIRIN (ACETYLSALICYLIC ACID) (UNKNOWN) (ACETYLSALICYLIC ACID) [Concomitant]
     Dosage: 325 MG, UNK

REACTIONS (1)
  - Malaise [None]
